FAERS Safety Report 16088601 (Version 1)
Quarter: 2019Q1

REPORT INFORMATION
  Report Type: Spontaneous
  Country: US (occurrence: US)
  Receive Date: 20190319
  Receipt Date: 20190319
  Transmission Date: 20190418
  Serious: No
  Sender: FDA-Public Use
  Company Number: US-PFIZER INC-2019111107

PATIENT

DRUGS (1)
  1. ALPRAZOLAM. [Suspect]
     Active Substance: ALPRAZOLAM
     Dosage: 0.5 MG, UNK

REACTIONS (5)
  - Sluggishness [Unknown]
  - Diarrhoea [Unknown]
  - Feeling abnormal [Unknown]
  - Somnolence [Unknown]
  - Vomiting [Unknown]
